FAERS Safety Report 9377779 (Version 1)
Quarter: 2013Q3

REPORT INFORMATION
  Report Type: Spontaneous
  Country: US (occurrence: US)
  Receive Date: 20130701
  Receipt Date: 20130701
  Transmission Date: 20140515
  Serious: No
  Sender: FDA-Public Use
  Company Number: US-GLAXOSMITHKLINE-A0991128A

PATIENT
  Sex: Female

DRUGS (5)
  1. IMITREX [Suspect]
     Indication: MIGRAINE
     Route: 045
  2. SUMATRIPTAN [Suspect]
     Indication: MIGRAINE
     Dosage: 1TAB AS REQUIRED
     Route: 048
     Dates: start: 1993
  3. IMITREX [Suspect]
     Indication: MIGRAINE
     Route: 065
  4. SUMATRIPTAN [Suspect]
     Indication: MIGRAINE
  5. NO CONCURRENT MEDICATION [Concomitant]

REACTIONS (5)
  - Drug ineffective [Unknown]
  - Therapeutic response decreased [Unknown]
  - Overdose [Unknown]
  - Feeling abnormal [Unknown]
  - Incorrect drug administration duration [Unknown]
